FAERS Safety Report 9057041 (Version 1)
Quarter: 2013Q1

REPORT INFORMATION
  Report Type: Report from Study
  Country: US (occurrence: US)
  Receive Date: 20130131
  Receipt Date: 20130131
  Transmission Date: 20140127
  Serious: No
  Sender: FDA-Public Use
  Company Number: US-ABBOTT-12P-163-0992777-00

PATIENT
  Age: 56 None
  Sex: Female
  Weight: 43.58 kg

DRUGS (6)
  1. HUMIRA [Suspect]
     Indication: RHEUMATOID ARTHRITIS
     Dates: start: 2004, end: 2007
  2. HUMIRA [Suspect]
  3. HYDROXYCHLOROQUINE [Suspect]
     Indication: RHEUMATOID ARTHRITIS
     Dates: start: 201110, end: 201110
  4. HUMALOG INSULIN (NON-ABBOTT) [Concomitant]
     Indication: DIABETES MELLITUS
  5. VALIUM [Concomitant]
     Indication: ANXIETY
  6. LEVEMIR [Concomitant]
     Indication: DIABETES MELLITUS

REACTIONS (4)
  - Neuropathy peripheral [Not Recovered/Not Resolved]
  - Vomiting [Recovered/Resolved]
  - Local swelling [Not Recovered/Not Resolved]
  - Pain in extremity [Not Recovered/Not Resolved]
